FAERS Safety Report 9408660 (Version 1)
Quarter: 2013Q3

REPORT INFORMATION
  Report Type: Spontaneous
  Country: US (occurrence: None)
  Receive Date: 20130716
  Receipt Date: 20130716
  Transmission Date: 20140515
  Serious: Yes (Other)
  Sender: FDA-Public Use
  Company Number: FK201302513

PATIENT
  Age: 62 Year
  Sex: Male

DRUGS (2)
  1. IFOSFAMIDE [Suspect]
     Indication: PLEOMORPHIC LIPOSARCOMA
  2. DOXORUBICIN (MANUFACTURER UNKNOWN) (DOXORUBICIN HYDROCHLORIDE) (DOXORUBICIN HYDROCHLORIDE) [Suspect]
     Indication: PLEOMORPHIC LIPOSARCOMA

REACTIONS (5)
  - Acute lymphocytic leukaemia [None]
  - Gingival bleeding [None]
  - Petechiae [None]
  - Thrombocytopenia [None]
  - Anaemia [None]
